FAERS Safety Report 15335560 (Version 3)
Quarter: 2018Q3

REPORT INFORMATION
  Report Type: Spontaneous
  Country: AU (occurrence: AU)
  Receive Date: 20180830
  Receipt Date: 20180911
  Transmission Date: 20181010
  Serious: Yes (Life-Threatening, Hospitalization, Other)
  Sender: FDA-Public Use
  Company Number: AU-PFIZER INC-0013541501PHAMED

PATIENT
  Age: 26 Year
  Sex: Male

DRUGS (2)
  1. SULFASALAZINE. [Suspect]
     Active Substance: SULFASALAZINE
     Indication: ANKYLOSING SPONDYLITIS
     Dosage: 100 DF, UNK
     Route: 048
  2. PARACETAMOL [Suspect]
     Active Substance: ACETAMINOPHEN
     Dosage: 50 G, UNK
     Route: 048

REACTIONS (18)
  - Body temperature decreased [Recovered/Resolved]
  - Hyperglycaemia [Recovered/Resolved]
  - Methaemoglobinaemia [Recovered/Resolved]
  - Drug level above therapeutic [Not Recovered/Not Resolved]
  - Kussmaul respiration [Not Recovered/Not Resolved]
  - Lactic acidosis [Recovered/Resolved]
  - Coagulopathy [Recovered/Resolved]
  - Respiratory depression [Recovered/Resolved]
  - Blood pH decreased [Not Recovered/Not Resolved]
  - Metabolic acidosis [Not Recovered/Not Resolved]
  - Urine ketone body present [Not Recovered/Not Resolved]
  - Loss of consciousness [Recovered/Resolved]
  - Toxicity to various agents [Recovered/Resolved]
  - Hypothermia [Recovered/Resolved]
  - Ketosis [Recovered/Resolved]
  - Overdose [Recovered/Resolved]
  - Seizure [Recovered/Resolved]
  - Glucose urine present [Not Recovered/Not Resolved]
